FAERS Safety Report 16691899 (Version 1)
Quarter: 2019Q3

REPORT INFORMATION
  Report Type: Spontaneous
  Country: FR (occurrence: FR)
  Receive Date: 20190812
  Receipt Date: 20190812
  Transmission Date: 20191004
  Serious: Yes (Life-Threatening)
  Sender: FDA-Public Use
  Company Number: FR-SUN PHARMACEUTICAL INDUSTRIES LTD-2019RR-217231

PATIENT
  Age: 72 Year
  Sex: Male
  Weight: 102.5 kg

DRUGS (2)
  1. METFORMIN [Suspect]
     Active Substance: METFORMIN HYDROCHLORIDE
     Indication: TYPE 2 DIABETES MELLITUS
     Dosage: 3000 MILLIGRAM, DAILY
     Route: 048
  2. KETOPROFENE [Concomitant]
     Active Substance: KETOPROFEN
     Indication: BACK PAIN
     Dosage: 2 DOSAGE FORM, DAILY
     Route: 030
     Dates: start: 20190626, end: 20190629

REACTIONS (4)
  - Vomiting [Recovered/Resolved]
  - Back pain [Recovered/Resolved]
  - Diarrhoea [Recovered/Resolved]
  - Lactic acidosis [Not Recovered/Not Resolved]

NARRATIVE: CASE EVENT DATE: 20190612
